FAERS Safety Report 5874576-1 (Version None)
Quarter: 2008Q3

REPORT INFORMATION
  Report Type: 
  Country: None (occurrence: None)
  Receive Date: 20080905
  Receipt Date: 20080905
  Transmission Date: 20090109
  Serious: Yes (Other)
  Sender: FDA-Public Use
  Company Number: None

PATIENT
  Age: 49 Year
  Sex: Female
  Weight: 64.8644 kg

DRUGS (2)
  1. TOPAMAX [Suspect]
     Indication: BIPOLAR I DISORDER
     Dosage: 800MG 1X DAILY AT BED PO
     Route: 048
     Dates: start: 19981001, end: 20071015
  2. TOPAMAX [Suspect]
     Indication: INSOMNIA
     Dosage: 800MG 1X DAILY AT BED PO
     Route: 048
     Dates: start: 19981001, end: 20071015

REACTIONS (17)
  - CALCIUM DEFICIENCY [None]
  - DEHYDRATION [None]
  - FOOT FRACTURE [None]
  - GASTRITIS [None]
  - LOWER LIMB FRACTURE [None]
  - METABOLIC DISORDER [None]
  - NEPHROLITHIASIS [None]
  - OESOPHAGITIS [None]
  - OFF LABEL USE [None]
  - OSTEOMALACIA [None]
  - OSTEOPENIA [None]
  - PAIN [None]
  - RENAL IMPAIRMENT [None]
  - RENAL TUBULAR ACIDOSIS [None]
  - TENDONITIS [None]
  - VITAMIN D DEFICIENCY [None]
  - WEIGHT DECREASED [None]
